FAERS Safety Report 8965135 (Version 1)
Quarter: 2012Q4

REPORT INFORMATION
  Report Type: 
  Country: AU (occurrence: AU)
  Receive Date: 20121213
  Receipt Date: 20121213
  Transmission Date: 20130627
  Serious: Yes (Other)
  Sender: FDA-Public Use
  Company Number: AU-BRISTOL-MYERS SQUIBB COMPANY-17172586

PATIENT
  Age: 36 Year
  Sex: Male

DRUGS (1)
  1. SPRYCEL [Suspect]
     Dosage: tabs

REACTIONS (3)
  - Abortion induced [Unknown]
  - Exposure via father [Unknown]
  - Pregnancy [Recovered/Resolved]
